FAERS Safety Report 8089151-0 (Version None)
Quarter: 2012Q1

REPORT INFORMATION
  Report Type: 
  Country: None (occurrence: None)
  Receive Date: 20120128
  Receipt Date: 20110824
  Transmission Date: 20120608
  Serious: No
  Sender: FDA-Public Use
  Company Number: US-ABBOTT-11P-163-0731368-00

PATIENT
  Age: 19 Year
  Sex: Female

DRUGS (5)
  1. FLAGYL [Concomitant]
     Indication: PROPHYLAXIS
     Route: 048
  2. HUMIRA [Suspect]
     Indication: CROHN'S DISEASE
     Dates: start: 20110301, end: 20110601
  3. LIALDA [Concomitant]
     Indication: PRODUCT USED FOR UNKNOWN INDICATION
     Route: 048
  4. PROZAC [Concomitant]
     Indication: OBSESSIVE-COMPULSIVE DISORDER
     Route: 048
  5. CANASA [Concomitant]
     Indication: PRODUCT USED FOR UNKNOWN INDICATION
     Dosage: THREE TIMES A WEEK

REACTIONS (8)
  - INJECTION SITE URTICARIA [None]
  - URTICARIA [None]
  - INJECTION SITE PRURITUS [None]
  - INJECTION SITE PAIN [None]
  - INJECTION SITE SWELLING [None]
  - ABDOMINAL DISTENSION [None]
  - MUSCLE SPASMS [None]
  - INJECTION SITE REACTION [None]
